FAERS Safety Report 11893504 (Version 1)
Quarter: 2016Q1

REPORT INFORMATION
  Report Type: Spontaneous
  Country: US (occurrence: US)
  Receive Date: 20160106
  Receipt Date: 20160106
  Transmission Date: 20160526
  Serious: No
  Sender: FDA-Public Use
  Company Number: US-009507513-1512USA014183

PATIENT
  Age: 33 Year
  Sex: Female
  Weight: 63 kg

DRUGS (9)
  1. AMERICAN HEALTH ORIGINAL PROBIOTIC ACIDOPHILUS LIQUID [Concomitant]
     Dosage: 100 MG ONCE
  2. TRAMADOL HYDROCHLORIDE. [Concomitant]
     Active Substance: TRAMADOL HYDROCHLORIDE
     Dosage: 50 MG, 6 X PER WEEK
  3. NEXPLANON [Suspect]
     Active Substance: ETONOGESTREL
     Indication: ENDOMETRIOSIS
     Dosage: 1 ROD UP TO 3 YEARS
     Route: 059
     Dates: start: 20150811, end: 20151102
  4. TRAZODONE HYDROCHLORIDE. [Concomitant]
     Active Substance: TRAZODONE HYDROCHLORIDE
     Dosage: 50MG AT BEDTIME
  5. OMEPRAZOLE. [Concomitant]
     Active Substance: OMEPRAZOLE
     Dosage: 40 MG, ONCE
  6. FLUCONAZOLE. [Concomitant]
     Active Substance: FLUCONAZOLE
     Dosage: 100 MG FOR 14 DAYS
  7. CETIRIZINE HYDROCHLORIDE. [Concomitant]
     Active Substance: CETIRIZINE HYDROCHLORIDE
     Dosage: 10 MG ONCE
  8. PEPPERMINT OIL [Concomitant]
     Active Substance: PEPPERMINT OIL
     Dosage: 3 DF BEFORE MEALS
  9. PAXIL [Concomitant]
     Active Substance: PAROXETINE HYDROCHLORIDE

REACTIONS (2)
  - Abdominal pain [Not Recovered/Not Resolved]
  - Product use issue [Unknown]

NARRATIVE: CASE EVENT DATE: 20150811
